FAERS Safety Report 4872015-0 (Version None)
Quarter: 2005Q4

REPORT INFORMATION
  Report Type: 
  Country: None (occurrence: None)
  Receive Date: 20051230
  Receipt Date: 20051212
  Transmission Date: 20060501
  Serious: Yes (Hospitalization)
  Sender: FDA-Public Use
  Company Number: US_0505117205

PATIENT
  Age: 38 Year
  Sex: Male
  Weight: 119.5 kg

DRUGS (12)
  1. ZYPREXA [Suspect]
     Indication: DEPRESSION
     Dosage: 20 MG, EACH EVENING, ORAL
     Route: 048
     Dates: start: 19981008, end: 20040601
  2. IMIPRAMINE [Concomitant]
  3. VALPROIC ACID (VALPROIC ACID0 [Concomitant]
  4. RISPERDAL [Concomitant]
  5. ATIVAN [Concomitant]
  6. PAXIL [Concomitant]
  7. ZOCOR [Concomitant]
  8. NAPROXEN [Concomitant]
  9. ASPIRIN [Concomitant]
  10. KLONOPIN [Concomitant]
  11. HYDROXYZINE [Concomitant]
  12. SYNTHROID [Concomitant]

REACTIONS (32)
  - ACUTE RESPIRATORY FAILURE [None]
  - ANAEMIA [None]
  - ASTHENIA [None]
  - BACK PAIN [None]
  - BLOOD CHOLESTEROL INCREASED [None]
  - BLOOD GLUCOSE INCREASED [None]
  - BLOOD TRIGLYCERIDES INCREASED [None]
  - CARDIOMEGALY [None]
  - CELLULITIS [None]
  - CONFUSIONAL STATE [None]
  - CORONARY ARTERY DISEASE [None]
  - DEPRESSED LEVEL OF CONSCIOUSNESS [None]
  - DIABETES MELLITUS INSULIN-DEPENDENT [None]
  - DIABETES MELLITUS NON-INSULIN-DEPENDENT [None]
  - DIFFICULTY IN WALKING [None]
  - DIZZINESS [None]
  - ELECTROCARDIOGRAM T WAVE ABNORMAL [None]
  - GLYCOSYLATED HAEMOGLOBIN INCREASED [None]
  - HYPERLIPIDAEMIA [None]
  - LETHARGY [None]
  - LOSS OF CONSCIOUSNESS [None]
  - METABOLIC SYNDROME [None]
  - NON-CARDIAC CHEST PAIN [None]
  - ORGANIC ERECTILE DYSFUNCTION [None]
  - ORTHOSTATIC HYPOTENSION [None]
  - PNEUMONIA ASPIRATION [None]
  - RESPIRATORY DISTRESS [None]
  - SOMNOLENCE [None]
  - SUICIDAL IDEATION [None]
  - TREATMENT NONCOMPLIANCE [None]
  - VOMITING [None]
  - WEIGHT INCREASED [None]
